FAERS Safety Report 4778226-7 (Version None)
Quarter: 2005Q3

REPORT INFORMATION
  Report Type: 
  Country: None (occurrence: None)
  Receive Date: 20050922
  Receipt Date: 20050909
  Transmission Date: 20060218
  Serious: Yes (Hospitalization, Other)
  Sender: FDA-Public Use
  Company Number: 203804

PATIENT
  Sex: Female

DRUGS (1)
  1. AVONEX [Suspect]
     Indication: MULTIPLE SCLEROSIS
     Dosage: 30 UG; QW; IM
     Route: 030
     Dates: start: 19990601, end: 20031001

REACTIONS (4)
  - ABDOMINAL HERNIA [None]
  - HYSTERECTOMY [None]
  - KNEE OPERATION [None]
  - POSTOPERATIVE HERNIA [None]
